FAERS Safety Report 9325532 (Version 2)
Quarter: 2013Q2

REPORT INFORMATION
  Report Type: Spontaneous
  Country: AU (occurrence: AU)
  Receive Date: 20130604
  Receipt Date: 20130611
  Transmission Date: 20140414
  Serious: Yes (Other)
  Sender: FDA-Public Use
  Company Number: AU-VERTEX PHARMACEUTICALS INC-2013-006694

PATIENT
  Age: 56 Year
  Sex: Female
  Weight: 90.2 kg

DRUGS (5)
  1. INCIVO [Suspect]
     Indication: HEPATITIS C
     Dosage: 750 MG, TID
     Route: 065
     Dates: start: 20130313, end: 20130528
  2. RIBAVIRIN [Suspect]
     Indication: PRODUCT USED FOR UNKNOWN INDICATION
     Dosage: DOSAGE FORM: TABLET
     Route: 065
     Dates: start: 20130313
  3. PEGINTERFERON ALFA [Suspect]
     Indication: PRODUCT USED FOR UNKNOWN INDICATION
     Dosage: DOSAGE FORM: UNSPECIFIED
     Route: 058
     Dates: start: 20130313
  4. ZANTAC [Suspect]
     Indication: PRODUCT USED FOR UNKNOWN INDICATION
     Dosage: DOSAGE FORM: UNSPECIFIED
     Route: 065
  5. PHENERGAN [Suspect]
     Indication: ANTIALLERGIC THERAPY
     Dosage: DOSAGE FORM: UNSPECIFIED
     Route: 065

REACTIONS (7)
  - Eosinophilia [Unknown]
  - Rash pruritic [Recovered/Resolved]
  - Urinary tract infection [Recovered/Resolved]
  - Mouth ulceration [Recovered/Resolved]
  - Rectal ulcer [Unknown]
  - Pyrexia [Recovered/Resolved]
  - Eye swelling [Not Recovered/Not Resolved]
